FAERS Safety Report 22148976 (Version 1)
Quarter: 2023Q1

REPORT INFORMATION
  Report Type: Report from Study
  Country: US (occurrence: US)
  Receive Date: 20230328
  Receipt Date: 20230328
  Transmission Date: 20230417
  Serious: Yes (Other)
  Sender: FDA-Public Use
  Company Number: US-GILEAD-2023-0618546

PATIENT
  Sex: Male

DRUGS (6)
  1. AMBRISENTAN [Suspect]
     Active Substance: AMBRISENTAN
     Indication: Pulmonary arterial hypertension
     Dosage: 10 MG, QD
     Route: 065
     Dates: start: 20220429
  2. AMBRISENTAN [Suspect]
     Active Substance: AMBRISENTAN
     Indication: HIV infection
  3. UPTRAVI [Concomitant]
     Active Substance: SELEXIPAG
  4. XARELTO [Concomitant]
     Active Substance: RIVAROXABAN
  5. ADCIRCA [Concomitant]
     Active Substance: TADALAFIL
  6. TYVASO [Concomitant]
     Active Substance: TREPROSTINIL

REACTIONS (5)
  - Glaucoma [Not Recovered/Not Resolved]
  - Disturbance in attention [Unknown]
  - Weight decreased [Not Recovered/Not Resolved]
  - Gout [Unknown]
  - Hypertension [Recovering/Resolving]
